FAERS Safety Report 6657841-X (Version None)
Quarter: 2010Q1

REPORT INFORMATION
  Report Type: 
  Country: None (occurrence: None)
  Receive Date: 20100330
  Receipt Date: 20100318
  Transmission Date: 20100710
  Serious: Yes (Other)
  Sender: FDA-Public Use
  Company Number: CA-ROCHE-685049

PATIENT
  Age: 57 Year
  Sex: Female

DRUGS (5)
  1. HERCEPTIN [Suspect]
     Dosage: DOSE REPORTED AS: 6 MG/KG (300 MG), FIRST LINE AND SECOND LINE OF TREATMENT
     Route: 042
  2. XELODA [Suspect]
     Dosage: FREQUENY: 2 WEEKS DAILY AND 1 WEEK REST, SECOND AND THIRD LINE OF TREATMENT
     Route: 048
  3. AVASTIN [Suspect]
     Dosage: DOSE REPORTED AS 15 MG/KG (825 MG), SECOND AND THIRD LINE OF TREATMENT
     Route: 042
  4. TAXOTERE [Suspect]
     Dosage: FIRST LINE OF TREATMENT
     Route: 042
  5. TYKERB [Concomitant]

REACTIONS (1)
  - DISEASE PROGRESSION [None]
